FAERS Safety Report 9491157 (Version 1)
Quarter: 2013Q3

REPORT INFORMATION
  Report Type: Spontaneous
  Country: US (occurrence: None)
  Receive Date: 20130827
  Receipt Date: 20130827
  Transmission Date: 20140515
  Serious: Yes (Hospitalization)
  Sender: FDA-Public Use
  Company Number: TPA2013A07798

PATIENT
  Age: 64 Year
  Sex: Male

DRUGS (1)
  1. COLCRYS [Suspect]
     Indication: GOUT
     Dosage: 0.6 MG, 2 TABLETS, THEN ONE TABLET IN HOUR, PER ORAL
     Route: 048

REACTIONS (4)
  - Diarrhoea [None]
  - Fall [None]
  - Scapula fracture [None]
  - Rib fracture [None]
